FAERS Safety Report 4408224-4 (Version None)
Quarter: 2004Q3

REPORT INFORMATION
  Report Type: 
  Country: None (occurrence: None)
  Receive Date: 20040726
  Receipt Date: 20040726
  Transmission Date: 20050211
  Serious: Yes (Other)
  Sender: FDA-Public Use
  Company Number: None

PATIENT
  Age: 53 Year
  Sex: Female

DRUGS (1)
  1. PPD (TB) [Suspect]
     Indication: IMMUNISATION
     Dosage: (L) ANTICUBICAL
     Dates: start: 20040629

REACTIONS (2)
  - ERYTHEMA [None]
  - SWELLING [None]
